FAERS Safety Report 6614849-8 (Version None)
Quarter: 2010Q1

REPORT INFORMATION
  Report Type: 
  Country: None (occurrence: None)
  Receive Date: 20100305
  Receipt Date: 20100225
  Transmission Date: 20100710
  Serious: Yes (Hospitalization)
  Sender: FDA-Public Use
  Company Number: US-BIOGENIDEC-2010BI005138

PATIENT
  Age: 58 Year
  Sex: Female

DRUGS (5)
  1. TYSABRI [Suspect]
     Indication: MULTIPLE SCLEROSIS
     Route: 042
     Dates: start: 20080204
  2. BACLOFEN [Concomitant]
     Indication: PAIN
     Route: 048
  3. LEVOXYL [Concomitant]
     Indication: HYPOTHYROIDISM
     Route: 048
  4. METFORMIN HYDROCHLORIDE [Concomitant]
     Route: 048
  5. PAXIL [Concomitant]
     Indication: DEPRESSION
     Route: 048

REACTIONS (1)
  - FOREIGN BODY [None]
